FAERS Safety Report 9424117 (Version 1)
Quarter: 2013Q3

REPORT INFORMATION
  Report Type: Spontaneous
  Country: AR (occurrence: AR)
  Receive Date: 20130729
  Receipt Date: 20130729
  Transmission Date: 20140515
  Serious: Yes (Death)
  Sender: FDA-Public Use
  Company Number: AR-BRISTOL-MYERS SQUIBB COMPANY-19123843

PATIENT
  Sex: Male

DRUGS (1)
  1. IPILIMUMAB [Suspect]

REACTIONS (1)
  - Cardio-respiratory arrest [Fatal]
